FAERS Safety Report 26155905 (Version 1)
Quarter: 2025Q4

REPORT INFORMATION
  Report Type: Spontaneous
  Country: RU (occurrence: RU)
  Receive Date: 20251215
  Receipt Date: 20251215
  Transmission Date: 20260118
  Serious: Yes (Other)
  Sender: ROCHE
  Company Number: RU-ROCHE-10000246275

PATIENT
  Sex: Male

DRUGS (15)
  1. OBINUTUZUMAB [Suspect]
     Active Substance: OBINUTUZUMAB
     Indication: Diffuse large B-cell lymphoma
     Dosage: RECEIVED TOTAL 6 CYCLES
     Dates: start: 20230728, end: 20231113
  2. OBINUTUZUMAB [Suspect]
     Active Substance: OBINUTUZUMAB
     Dosage: CYCLE 7
  3. OBINUTUZUMAB [Suspect]
     Active Substance: OBINUTUZUMAB
     Dosage: CYCLE 8
  4. OBINUTUZUMAB [Suspect]
     Active Substance: OBINUTUZUMAB
     Dosage: RECEIVED TOTAL 6 CYCLES,OF OBINITUZUMAB, RITUXIMAB, LENALIDOMIDE
     Dates: start: 20240716, end: 202412
  5. RITUXIMAB [Suspect]
     Active Substance: RITUXIMAB
     Indication: Diffuse large B-cell lymphoma
     Dosage: RECEIVED TOTAL 6 CYCLES,OF OBINITUZUMAB, RITUXIMAB, LENALIDOMIDE
     Dates: start: 20240716, end: 202412
  6. MOSUNETUZUMAB [Suspect]
     Active Substance: MOSUNETUZUMAB
     Indication: Diffuse large B-cell lymphoma
     Dosage: START 29-JAN-2025?29/JAN/2025, THE 1ST CYCLE OF THERAPY WAS PERFORMED.?STARTING 19/FEB/2025, THE 2ND CYCLE OF THERAPY WAS PERFORMED.?STARTING 12/MAR/2025, THE 3RD CYCLE OF THERAPY WAS PERFORMED.?STARTING 02/APR/2025, THE 4TH CYCLE OF THERAPY WAS PERFORMED.?STARTING 23/APR/2025, THE 5TH CYCLE OF THER
  7. MOSUNETUZUMAB [Suspect]
     Active Substance: MOSUNETUZUMAB
     Dosage: 12-MAR-2025
  8. MOSUNETUZUMAB [Suspect]
     Active Substance: MOSUNETUZUMAB
     Dosage: 02-APR-2025
  9. CYCLOPHOSPHAMIDE [Suspect]
     Active Substance: CYCLOPHOSPHAMIDE
     Indication: Diffuse large B-cell lymphoma
     Dosage: RECEIVED TOTAL 6 CYCLES
     Dates: start: 20230728, end: 20231113
  10. DOXORUBICIN [Suspect]
     Active Substance: DOXORUBICIN
     Indication: Diffuse large B-cell lymphoma
     Dosage: RECEIVED TOTAL 6 CYCLES
     Dates: start: 20230728, end: 20231113
  11. VINCRISTINE [Suspect]
     Active Substance: VINCRISTINE
     Indication: Diffuse large B-cell lymphoma
     Dosage: RECEIVED TOTAL 6 CYCLES
     Dates: start: 20230728, end: 20231113
  12. PREDNISONE [Suspect]
     Active Substance: PREDNISONE
     Indication: Diffuse large B-cell lymphoma
     Dosage: RECEIVED TOTAL 6 CYCLES
     Dates: start: 20230728, end: 20231113
  13. LENALIDOMIDE [Suspect]
     Active Substance: LENALIDOMIDE
     Indication: Diffuse large B-cell lymphoma
     Dosage: RECEIVED TOTAL 6 CYCLES,OF OBINITUZUMAB, RITUXIMAB, LENALIDOMIDE
     Dates: start: 20240716, end: 202412
  14. DEXAMETHASONE [Concomitant]
     Active Substance: DEXAMETHASONE
  15. DIPHENHYDRAMINE [Concomitant]
     Active Substance: DIPHENHYDRAMINE

REACTIONS (3)
  - Therapeutic response decreased [Unknown]
  - Haematotoxicity [Unknown]
  - Body temperature increased [Recovered/Resolved]
